FAERS Safety Report 8021707-3 (Version None)
Quarter: 2012Q1

REPORT INFORMATION
  Report Type: 
  Country: None (occurrence: None)
  Receive Date: 20120104
  Receipt Date: 20111222
  Transmission Date: 20120608
  Serious: Yes (Other)
  Sender: FDA-Public Use
  Company Number: PHHY2011CA29615

PATIENT
  Sex: Male

DRUGS (1)
  1. SANDOSTATIN LAR [Suspect]
     Indication: NEUROENDOCRINE TUMOUR
     Dosage: 30 MG, EVERY 4 WEEKS
     Route: 030
     Dates: start: 20110318

REACTIONS (15)
  - HEPATIC PAIN [None]
  - ALOPECIA [None]
  - CONSTIPATION [None]
  - DIARRHOEA HAEMORRHAGIC [None]
  - NIGHT SWEATS [None]
  - METASTASIS [None]
  - DECREASED APPETITE [None]
  - FATIGUE [None]
  - NAUSEA [None]
  - DIARRHOEA [None]
  - MALAISE [None]
  - HYPERHIDROSIS [None]
  - BLOOD PRESSURE SYSTOLIC INCREASED [None]
  - WEIGHT DECREASED [None]
  - FLUSHING [None]
